FAERS Safety Report 15586934 (Version 2)
Quarter: 2019Q1

REPORT INFORMATION
  Report Type: Spontaneous
  Country: US (occurrence: US)
  Receive Date: 20181105
  Receipt Date: 20190201
  Transmission Date: 20190417
  Serious: No
  Sender: FDA-Public Use
  Company Number: US-FDC LIMITED-2018RIS00484

PATIENT
  Age: 84 Year
  Sex: Male
  Weight: 77.1 kg

DRUGS (2)
  1. LATANOPROST. [Suspect]
     Active Substance: LATANOPROST
     Indication: GLAUCOMA
     Dosage: 1 GTT, IN BOTH EYES, 1X/DAY AT NIGHT
     Route: 047
  2. TIMOLOL MALEATE (NON-COMPANY) [Suspect]
     Active Substance: TIMOLOL MALEATE
     Dosage: 1 GTT, 1X/DAY IN BOTH EYES
     Route: 047

REACTIONS (1)
  - Foreign body sensation in eyes [Not Recovered/Not Resolved]

NARRATIVE: CASE EVENT DATE: 20180624
